FAERS Safety Report 4399669-X (Version None)
Quarter: 2004Q3

REPORT INFORMATION
  Report Type: 
  Country: None (occurrence: None)
  Receive Date: 20040713
  Receipt Date: 20040629
  Transmission Date: 20050211
  Serious: Yes (Hospitalization)
  Sender: FDA-Public Use
  Company Number: 04P-163-0265168-00

PATIENT
  Age: 63 Year
  Sex: Female

DRUGS (3)
  1. SYNTHROID [Suspect]
     Indication: HORMONE LEVEL ABNORMAL
     Dosage: 100 MCG, 1 IN 1 D, PER ORAL
     Route: 048
     Dates: start: 19900101
  2. SYNTHROID [Suspect]
     Indication: THYROID DISORDER
     Dosage: 100 MCG, 1 IN 1 D, PER ORAL
     Route: 048
     Dates: start: 19900101
  3. ASPIRIN [Concomitant]

REACTIONS (3)
  - ANGINA PECTORIS [None]
  - CORONARY ARTERY OCCLUSION [None]
  - HEART RATE INCREASED [None]
